FAERS Safety Report 21952466 (Version 1)
Quarter: 2023Q1

REPORT INFORMATION
  Report Type: Spontaneous
  Country: US (occurrence: US)
  Receive Date: 20230203
  Receipt Date: 20230203
  Transmission Date: 20230417
  Serious: No
  Sender: FDA-Public Use
  Company Number: US-Teikoku Pharma USA-TPU2023-00008

PATIENT
  Age: 41 Year
  Sex: Female
  Weight: 63.560 kg

DRUGS (1)
  1. LIDOCAINE PATCH [Suspect]
     Active Substance: LIDOCAINE
     Indication: Myectomy
     Route: 061
     Dates: start: 202108

REACTIONS (4)
  - Application site pain [Unknown]
  - Application site pain [Unknown]
  - Application site erythema [Unknown]
  - Application site discolouration [Unknown]

NARRATIVE: CASE EVENT DATE: 20221201
